FAERS Safety Report 7448164-X (Version None)
Quarter: 2011Q2

REPORT INFORMATION
  Report Type: 
  Country: None (occurrence: None)
  Receive Date: 20110429
  Receipt Date: 20110104
  Transmission Date: 20111010
  Serious: No
  Sender: FDA-Public Use
  Company Number: US-ASTRAZENECA-2009UW05914

PATIENT
  Age: 88 Year
  Sex: Female
  Weight: 49.9 kg

DRUGS (2)
  1. BONIVA [Concomitant]
  2. NEXIUM [Suspect]
     Indication: GASTROOESOPHAGEAL REFLUX DISEASE
     Route: 048

REACTIONS (4)
  - DRUG DOSE OMISSION [None]
  - PAIN IN EXTREMITY [None]
  - DISEASE RECURRENCE [None]
  - ARTHRALGIA [None]
